FAERS Safety Report 24146578 (Version 2)
Quarter: 2024Q3

REPORT INFORMATION
  Report Type: Spontaneous
  Country: US (occurrence: US)
  Receive Date: 20240729
  Receipt Date: 20240822
  Transmission Date: 20241016
  Serious: Yes (Other)
  Sender: GILEAD
  Company Number: US-GILEAD-2024-0681883

PATIENT
  Age: 69 Year
  Sex: Male
  Weight: 220 kg

DRUGS (6)
  1. EPCLUSA [Suspect]
     Active Substance: SOFOSBUVIR\VELPATASVIR
     Indication: Hepatitis C
     Dosage: 400- 100 MG
     Route: 048
     Dates: start: 20240723
  2. ELIQUIS [Concomitant]
     Active Substance: APIXABAN
     Indication: Atrial fibrillation
     Dosage: 5 MG
     Route: 048
     Dates: start: 20230911
  3. METOPROLOL [Concomitant]
     Active Substance: METOPROLOL
     Indication: Atrial fibrillation
     Dosage: 25 MG, BID
     Route: 048
     Dates: start: 20190412
  4. BUPRENORPHINE HYDROCHLORIDE\NALOXONE HYDROCHLORIDE [Concomitant]
     Active Substance: BUPRENORPHINE HYDROCHLORIDE\NALOXONE HYDROCHLORIDE
     Indication: Drug withdrawal syndrome
     Dosage: 0.7- 0.18 MG
     Route: 048
     Dates: start: 20230508
  5. CYCLOBENZAPRINE [Concomitant]
     Active Substance: CYCLOBENZAPRINE
     Indication: Muscle spasms
     Dosage: 10 MG
     Route: 048
     Dates: start: 20231013
  6. TAMSULOSIN [Concomitant]
     Active Substance: TAMSULOSIN
     Indication: Benign prostatic hyperplasia
     Dosage: 0.4 MG
     Route: 048
     Dates: start: 20200127

REACTIONS (1)
  - Atrial fibrillation [Recovered/Resolved]

NARRATIVE: CASE EVENT DATE: 20240723
